FAERS Safety Report 8155741-X (Version None)
Quarter: 2012Q1

REPORT INFORMATION
  Report Type: 
  Country: None (occurrence: None)
  Receive Date: 20120222
  Receipt Date: 20120217
  Transmission Date: 20120608
  Serious: Yes (Hospitalization)
  Sender: FDA-Public Use
  Company Number: IE-AMGEN-IRLSP2011054449

PATIENT
  Sex: Female

DRUGS (11)
  1. DEXAMETHASONE [Concomitant]
     Indication: PRODUCT USED FOR UNKNOWN INDICATION
  2. EMEND [Concomitant]
     Indication: PRODUCT USED FOR UNKNOWN INDICATION
  3. NEULASTA [Suspect]
     Indication: CHEMOTHERAPY
     Dosage: 6 MG, 2 TIMES/WK
     Route: 058
     Dates: start: 20110929
  4. MOTILIUM                           /00498201/ [Concomitant]
     Indication: PRODUCT USED FOR UNKNOWN INDICATION
  5. TRAMADOL HCL [Concomitant]
     Indication: PRODUCT USED FOR UNKNOWN INDICATION
  6. MYCOSTATIN [Concomitant]
     Indication: PRODUCT USED FOR UNKNOWN INDICATION
  7. IMODIUM [Concomitant]
     Indication: PRODUCT USED FOR UNKNOWN INDICATION
  8. CORSODYL [Concomitant]
     Indication: PRODUCT USED FOR UNKNOWN INDICATION
  9. VALOID                             /00014902/ [Concomitant]
     Indication: PRODUCT USED FOR UNKNOWN INDICATION
  10. ANTINEOPLASTIC AGENTS [Concomitant]
     Indication: BREAST CANCER
  11. ATIVAN [Concomitant]
     Indication: PRODUCT USED FOR UNKNOWN INDICATION

REACTIONS (6)
  - DEHYDRATION [None]
  - HEADACHE [None]
  - VOMITING [None]
  - NAUSEA [None]
  - CLOSTRIDIAL INFECTION [None]
  - DIARRHOEA [None]
